FAERS Safety Report 16823146 (Version 1)
Quarter: 2019Q3

REPORT INFORMATION
  Report Type: Spontaneous
  Country: US (occurrence: US)
  Receive Date: 20190918
  Receipt Date: 20190918
  Transmission Date: 20191005
  Serious: Yes (Death, Hospitalization, Other)
  Sender: FDA-Public Use
  Company Number: US-GILEAD-2019-0428336

PATIENT
  Age: 59 Year
  Sex: Male

DRUGS (3)
  1. EPCLUSA [Suspect]
     Active Substance: SOFOSBUVIR\VELPATASVIR
     Indication: PRODUCT USED FOR UNKNOWN INDICATION
     Dosage: UNK
     Route: 065
     Dates: start: 20190327, end: 20190619
  2. LASIX [Concomitant]
     Active Substance: FUROSEMIDE
  3. CLONIPINE [Concomitant]
     Active Substance: CLONAZEPAM

REACTIONS (5)
  - Poor quality sleep [Unknown]
  - Swelling [Unknown]
  - Dyspnoea [Unknown]
  - Death [Fatal]
  - Troponin increased [Unknown]

NARRATIVE: CASE EVENT DATE: 20190612
